FAERS Safety Report 9810317 (Version 4)
Quarter: 2018Q1

REPORT INFORMATION
  Report Type: Spontaneous
  Country: US (occurrence: US)
  Receive Date: 20140110
  Receipt Date: 20180228
  Transmission Date: 20180509
  Serious: Yes (Hospitalization, Disabling)
  Sender: FDA-Public Use
  Company Number: US-SANOFI-AVENTIS-2013SA078191

PATIENT
  Age: 74 Year
  Sex: Female
  Weight: 98.88 kg

DRUGS (11)
  1. LANTUS [Concomitant]
     Active Substance: INSULIN GLARGINE
     Dosage: EVERY 5 MINUTES
     Route: 065
  2. PRILOSEC [Concomitant]
     Active Substance: OMEPRAZOLE MAGNESIUM
  3. DIOVAN [Concomitant]
     Active Substance: VALSARTAN
  4. NORVASC [Concomitant]
     Active Substance: AMLODIPINE BESYLATE
  5. PROTONIX [Concomitant]
     Active Substance: PANTOPRAZOLE SODIUM
     Route: 065
  6. ATENOLOL. [Concomitant]
     Active Substance: ATENOLOL
  7. CRESTOR [Concomitant]
     Active Substance: ROSUVASTATIN CALCIUM
  8. ASPIRIN. [Concomitant]
     Active Substance: ASPIRIN
  9. PLAVIX [Suspect]
     Active Substance: CLOPIDOGREL BISULFATE
     Indication: STENT PLACEMENT
     Route: 041
     Dates: start: 200601, end: 20060629
  10. NITROGLYCERIN. [Concomitant]
     Active Substance: NITROGLYCERIN
     Dosage: EVERY 5 MINUTES
     Route: 065
  11. NEXIUM [Concomitant]
     Active Substance: ESOMEPRAZOLE MAGNESIUM

REACTIONS (4)
  - Transient ischaemic attack [Unknown]
  - Injury [Unknown]
  - Diabetes mellitus [Unknown]
  - Gastrointestinal haemorrhage [Unknown]

NARRATIVE: CASE EVENT DATE: 200301
